FAERS Safety Report 11723277 (Version 1)
Quarter: 2015Q4

REPORT INFORMATION
  Report Type: Spontaneous
  Country: US (occurrence: US)
  Receive Date: 20151111
  Receipt Date: 20151111
  Transmission Date: 20160304
  Serious: No
  Sender: FDA-Public Use
  Company Number: US-GALDERMA-US15007041

PATIENT
  Age: 16 Year
  Sex: Female

DRUGS (3)
  1. OIL OF OLAY CLEANSING CLOTHS [Concomitant]
     Indication: THERAPEUTIC SKIN CARE TOPICAL
     Route: 061
  2. DERMALOGICA [Concomitant]
     Indication: THERAPEUTIC SKIN CARE TOPICAL
     Route: 061
  3. EPIDUO FORTE [Suspect]
     Active Substance: ADAPALENE\BENZOYL PEROXIDE
     Indication: ACNE
     Route: 061
     Dates: start: 20150829, end: 20150901

REACTIONS (3)
  - Emotional distress [Not Recovered/Not Resolved]
  - Acne [Not Recovered/Not Resolved]
  - Sensory disturbance [Not Recovered/Not Resolved]
